FAERS Safety Report 6692405 (Version 6)
Quarter: 2015Q1

REPORT INFORMATION
  Report Type: Report from Study
  Country: JP (occurrence: JP)
  Receive Date: 20080707
  Receipt Date: 20150101
  Transmission Date: 20150721
  Serious: Yes (Hospitalization)
  Sender: FDA-Public Use
  Company Number: JP-ROCHE-572912

PATIENT
  Age: 63 Year
  Sex: Male
  Weight: 50.4 kg

DRUGS (22)
  1. CAPECITABINE. [Suspect]
     Active Substance: CAPECITABINE
     Indication: GASTRIC CANCER
     Dosage: BATCH NO. REPORTED AS: 90871 (150 MG TAB), 79731 (500 MG TAB)?, FREQUENCY: D1-D14Q3W
     Route: 048
     Dates: start: 20080411, end: 20080626
  2. CAPECITABINE. [Suspect]
     Active Substance: CAPECITABINE
     Route: 048
  3. CISPLATIN. [Suspect]
     Active Substance: CISPLATIN
     Indication: GASTRIC CANCER
     Dosage: FORM REPORTED AS: INFUSION, FREQUENCY: D1Q3W
     Route: 042
     Dates: start: 20080411, end: 20080625
  4. MOSAPRIDE CITRATE [Concomitant]
     Active Substance: MOSAPRIDE CITRATE
     Route: 065
     Dates: start: 200604, end: 20080626
  5. FERROUS SULFATE [Concomitant]
     Active Substance: FERROUS SULFATE\FERROUS SULFATE, DRIED
     Dosage: DRUG NAME REPORTED AS: DRIED FERROUS SULFATE
     Route: 065
     Dates: start: 20080623, end: 20080626
  6. MORPHINE HYDROCHLORIDE [Concomitant]
     Active Substance: MORPHINE HYDROCHLORIDE
     Dosage: DRUG NAME REPORTED AS MORPHINE HYDROCHLORIDE HYDRATE.
     Route: 065
  7. PENTAZOCINE HYDROCHLORIDE [Concomitant]
     Active Substance: PENTAZOCINE HYDROCHLORIDE
     Route: 065
     Dates: start: 20080626, end: 20080627
  8. CISPLATIN. [Suspect]
     Active Substance: CISPLATIN
     Route: 042
     Dates: start: 20080819, end: 20080909
  9. MOSAPRIDE CITRATE [Concomitant]
     Active Substance: MOSAPRIDE CITRATE
     Route: 065
  10. LOXOPROFEN SODIUM [Concomitant]
     Active Substance: LOXOPROFEN SODIUM
     Dosage: DRUG NAME REPORTED AS: LOXOPROFEN SODIUM HYDRATE, FREQUENCY:PRN
     Route: 065
     Dates: start: 20080624, end: 20080626
  11. DOMPERIDONE [Concomitant]
     Active Substance: DOMPERIDONE
     Dosage: FREQUENCY: PRN
     Route: 065
     Dates: start: 20080626, end: 20080626
  12. LANSOPRAZOLE. [Concomitant]
     Active Substance: LANSOPRAZOLE
     Route: 065
  13. MAGNESIUM OXIDE. [Concomitant]
     Active Substance: MAGNESIUM OXIDE
     Route: 065
  14. BEVACIZUMAB [Suspect]
     Active Substance: BEVACIZUMAB
     Indication: GASTRIC CANCER
     Dosage: FORM REPORTED AS: INFUSION, FREQUENCY REPORTED AS D1 Q3W. PERMANENTLY DISCONTINUED.
     Route: 042
     Dates: start: 20080411, end: 20080625
  15. LOSARTAN POTASSIUM. [Concomitant]
     Active Substance: LOSARTAN POTASSIUM
     Route: 065
     Dates: start: 200604, end: 20080626
  16. MORPHINE SULFATE. [Concomitant]
     Active Substance: MORPHINE SULFATE
     Route: 065
  17. AMLODIPINE BESYLATE. [Concomitant]
     Active Substance: AMLODIPINE BESYLATE
     Route: 065
     Dates: start: 20080502, end: 20080626
  18. DICLOFENAC SODIUM. [Concomitant]
     Active Substance: DICLOFENAC SODIUM
     Route: 065
     Dates: start: 20080626, end: 20080626
  19. SENNOSIDE A+B [Concomitant]
     Active Substance: SENNOSIDES A AND B
     Route: 065
  20. CAPECITABINE. [Suspect]
     Active Substance: CAPECITABINE
     Dosage: FREQUENCY REPORTED AS 1-14 DAYS EVERY 3 WEEKS. THERAPY WAS PERMENANTLY DISCONTINUED.
     Route: 048
  21. VOGLIBOSE [Concomitant]
     Active Substance: VOGLIBOSE
     Route: 065
     Dates: start: 200604, end: 20080626
  22. REBAMIPIDE [Concomitant]
     Active Substance: REBAMIPIDE
     Route: 065

REACTIONS (1)
  - Gastric perforation [Recovered/Resolved]

NARRATIVE: CASE EVENT DATE: 20080627
